FAERS Safety Report 8588575 (Version 5)
Quarter: 2013Q4

REPORT INFORMATION
  Report Type: Spontaneous
  Country: US (occurrence: US)
  Receive Date: 20120531
  Receipt Date: 20131121
  Transmission Date: 20140711
  Serious: Yes (Life-Threatening, Hospitalization, Other)
  Sender: FDA-Public Use
  Company Number: US-GLAXOSMITHKLINE-A0979392A

PATIENT
  Age: 55 Year
  Sex: Female

DRUGS (2)
  1. FLOLAN [Suspect]
     Indication: PULMONARY HYPERTENSION
     Dosage: 28.5NGKM CONTINUOUS
     Route: 042
     Dates: start: 20080320
  2. COUMADIN [Concomitant]

REACTIONS (11)
  - Coma [Recovered/Resolved]
  - Fluid overload [Recovered/Resolved]
  - Dyspnoea [Recovered/Resolved]
  - Pain in jaw [Unknown]
  - Right ventricular failure [Recovered/Resolved]
  - Cardiogenic shock [Recovered/Resolved]
  - Tachycardia [Recovered/Resolved]
  - Headache [Unknown]
  - Fatigue [Unknown]
  - Toothache [Unknown]
  - Device breakage [Unknown]
